FAERS Safety Report 21786122 (Version 2)
Quarter: 2023Q1

REPORT INFORMATION
  Report Type: Report from Study
  Country: MX (occurrence: MX)
  Receive Date: 20221228
  Receipt Date: 20230105
  Transmission Date: 20230418
  Serious: Yes (Hospitalization, Other)
  Sender: FDA-Public Use
  Company Number: MX-002147023-NVSC2022MX298906

PATIENT
  Age: 57 Year
  Sex: Male
  Weight: 84 kg

DRUGS (1)
  1. EXFORGE HCT [Suspect]
     Active Substance: AMLODIPINE BESYLATE\HYDROCHLOROTHIAZIDE\VALSARTAN
     Indication: Hypertension
     Dosage: 1 DOSAGE FORM, QD (ABOUT 3 YEARS AGO)
     Route: 048

REACTIONS (1)
  - Colon cancer [Recovering/Resolving]

NARRATIVE: CASE EVENT DATE: 20221001
